FAERS Safety Report 8131407-7 (Version None)
Quarter: 2012Q1

REPORT INFORMATION
  Report Type: 
  Country: None (occurrence: None)
  Receive Date: 20120213
  Receipt Date: 20120203
  Transmission Date: 20120608
  Serious: Yes (Hospitalization)
  Sender: FDA-Public Use
  Company Number: US-BAYER-2011-019823

PATIENT
  Age: 17 Year
  Sex: Female
  Weight: 74.83 kg

DRUGS (4)
  1. DILAUDID [Concomitant]
  2. YAZ [Suspect]
     Dosage: UNK
  3. YASMIN [Suspect]
  4. ZOFRAN [Concomitant]

REACTIONS (3)
  - DEEP VEIN THROMBOSIS [None]
  - PAIN [None]
  - INJURY [None]
